FAERS Safety Report 22332720 (Version 2)
Quarter: 2023Q2

REPORT INFORMATION
  Report Type: Spontaneous
  Country: US (occurrence: US)
  Receive Date: 20230517
  Receipt Date: 20230607
  Transmission Date: 20230722
  Serious: No
  Sender: FDA-Public Use
  Company Number: US-BRISTOL-MYERS SQUIBB COMPANY-2023-068116

PATIENT
  Age: 75 Year
  Sex: Female

DRUGS (1)
  1. ORENCIA [Suspect]
     Active Substance: ABATACEPT
     Indication: Rheumatoid arthritis
     Route: 058
     Dates: start: 202303

REACTIONS (4)
  - Dizziness [Unknown]
  - Diarrhoea [Recovering/Resolving]
  - Fatigue [Unknown]
  - Pain [Unknown]
